FAERS Safety Report 18686417 (Version 1)
Quarter: 2020Q4

REPORT INFORMATION
  Report Type: Other
  Country: US (occurrence: US)
  Receive Date: 20201230
  Receipt Date: 20201230
  Transmission Date: 20210114
  Serious: Yes (Other)
  Sender: FDA-Public Use
  Company Number: US-ETHYPHARM-2020002098

PATIENT
  Age: 19 Year
  Sex: Female

DRUGS (1)
  1. BUPRENORPHINE. [Suspect]
     Active Substance: BUPRENORPHINE
     Indication: PRODUCT USED FOR UNKNOWN INDICATION
     Route: 042

REACTIONS (3)
  - Incorrect route of product administration [Recovering/Resolving]
  - Drug-induced liver injury [Recovering/Resolving]
  - Drug abuse [Recovering/Resolving]
